FAERS Safety Report 4373946-0 (Version None)
Quarter: 2004Q2

REPORT INFORMATION
  Report Type: 
  Country: None (occurrence: None)
  Receive Date: 20040601
  Receipt Date: 20040408
  Transmission Date: 20050107
  Serious: Yes (Hospitalization)
  Sender: FDA-Public Use
  Company Number: 138742USA

PATIENT
  Age: 14 Year
  Sex: Female
  Weight: 76 kg

DRUGS (3)
  1. IFOSFAMIDE [Suspect]
     Indication: METASTASIS
     Dosage: 1800 MG/M2 DAILY INTRAVENOUS (NOS)
     Route: 042
     Dates: start: 20040216, end: 20040217
  2. IFOSFAMIDE [Suspect]
     Indication: RHABDOMYOSARCOMA
     Dosage: 1800 MG/M2 DAILY INTRAVENOUS (NOS)
     Route: 042
     Dates: start: 20040216, end: 20040217
  3. ETOPOSIDE [Concomitant]

REACTIONS (4)
  - AGITATION [None]
  - COMMUNICATION DISORDER [None]
  - CONFUSIONAL STATE [None]
  - INCONTINENCE [None]
